FAERS Safety Report 5479335-X (Version None)
Quarter: 2007Q4

REPORT INFORMATION
  Report Type: 
  Country: None (occurrence: None)
  Receive Date: 20071003
  Receipt Date: 20071003
  Transmission Date: 20080405
  Serious: No
  Sender: FDA-Public Use
  Company Number: None

PATIENT
  Sex: Female

DRUGS (1)
  1. FOSAMAX [Suspect]
     Dosage: 70 MG WEEKLY ORAL
     Route: 048

REACTIONS (5)
  - CERVICAL VERTEBRAL FRACTURE [None]
  - MULTIPLE FRACTURES [None]
  - MYALGIA [None]
  - PAIN [None]
  - ROAD TRAFFIC ACCIDENT [None]
